FAERS Safety Report 8245952-7 (Version None)
Quarter: 2012Q1

REPORT INFORMATION
  Report Type: 
  Country: None (occurrence: None)
  Receive Date: 20120330
  Receipt Date: 20120327
  Transmission Date: 20120608
  Serious: No
  Sender: FDA-Public Use
  Company Number: US-PFIZER INC-2012060138

PATIENT
  Sex: Male
  Weight: 81.633 kg

DRUGS (5)
  1. SUTENT [Suspect]
     Indication: RENAL CANCER
     Dosage: 50 MG, DAILY FOR 28 DAYS THEN 2 WEEKS OFF THEN SAME CYCLE CONTINUES
     Route: 048
     Dates: start: 20110101
  2. METFORMIN [Concomitant]
     Indication: DIABETES MELLITUS
     Dosage: 500 MG, DAILY
     Dates: end: 20120101
  3. SUTENT [Suspect]
     Indication: METASTASES TO LUNG
  4. SUTENT [Suspect]
     Indication: METASTASES TO PANCREAS
  5. LISINOPRIL [Concomitant]
     Indication: BLOOD PRESSURE INCREASED
     Dosage: 40 MG, DAILY

REACTIONS (6)
  - HEART RATE DECREASED [None]
  - BLOOD PRESSURE FLUCTUATION [None]
  - FATIGUE [None]
  - VASCULAR CALCIFICATION [None]
  - HYPERTENSION [None]
  - RED BLOOD CELL COUNT DECREASED [None]
